FAERS Safety Report 17169478 (Version 5)
Quarter: 2020Q1

REPORT INFORMATION
  Report Type: Spontaneous
  Country: US (occurrence: US)
  Receive Date: 20191218
  Receipt Date: 20200311
  Transmission Date: 20200409
  Serious: No
  Sender: FDA-Public Use
  Company Number: US-ACTELION-A-NJ2019-198989

PATIENT
  Age: 59 Year
  Sex: Male
  Weight: 90.7 kg

DRUGS (4)
  1. OPSUMIT [Suspect]
     Active Substance: MACITENTAN
     Indication: PULMONARY ARTERIAL HYPERTENSION
     Dosage: 10 MG, QD
     Route: 048
     Dates: start: 20191122
  2. ADEMPAS [Concomitant]
     Active Substance: RIOCIGUAT
     Dosage: 2.5 MG, TID
  3. TYVASO [Concomitant]
     Active Substance: TREPROSTINIL
  4. UPTRAVI [Concomitant]
     Active Substance: SELEXIPAG

REACTIONS (11)
  - Musculoskeletal stiffness [Unknown]
  - Dyspepsia [Recovering/Resolving]
  - Muscle spasms [Unknown]
  - Eye oedema [Unknown]
  - Dizziness [Unknown]
  - Hypoacusis [Unknown]
  - Epistaxis [Unknown]
  - Fatigue [Unknown]
  - Asthenia [Unknown]
  - Cardiac flutter [Unknown]
  - Unevaluable event [Not Recovered/Not Resolved]

NARRATIVE: CASE EVENT DATE: 202002
